FAERS Safety Report 16301210 (Version 3)
Quarter: 2019Q2

REPORT INFORMATION
  Report Type: Spontaneous
  Country: FR (occurrence: FR)
  Receive Date: 20190510
  Receipt Date: 20190611
  Transmission Date: 20190711
  Serious: Yes (Hospitalization)
  Sender: FDA-Public Use
  Company Number: FR-AUROBINDO-AUR-APL-2019-025161

PATIENT

DRUGS (25)
  1. BACLOFEN. [Suspect]
     Active Substance: BACLOFEN
     Indication: BINGE EATING
     Dosage: 60 MILLIGRAM, 4.8 HOUR , DOSES UP TO 300 MG/D (60MG TAKEN 5 TIMEA A DAY)
     Route: 065
     Dates: start: 2016
  2. BACLOFEN. [Suspect]
     Active Substance: BACLOFEN
     Dosage: 300 MILLIGRAM, ONCE A DAY, REGIMEN UP TO 300 MG/D
     Route: 065
  3. RILMENIDINE [Concomitant]
     Active Substance: RILMENIDINE
     Indication: BINGE EATING
     Dosage: UNK
     Route: 065
  4. LERCANIDIPINE [Concomitant]
     Active Substance: LERCANIDIPINE
     Indication: PRODUCT USED FOR UNKNOWN INDICATION
     Dosage: UNK
     Route: 065
  5. CANNABIS [Concomitant]
     Active Substance: CANNABIS SATIVA SUBSP. INDICA TOP
     Indication: PRODUCT USED FOR UNKNOWN INDICATION
     Dosage: UNK
     Route: 065
  6. BACLOFEN. [Suspect]
     Active Substance: BACLOFEN
     Dosage: 80 MILLIGRAM, ONCE A DAY, DOSES TO 80 MG/D
     Route: 065
  7. FLECAINIDE [Concomitant]
     Active Substance: FLECAINIDE
     Indication: PRODUCT USED FOR UNKNOWN INDICATION
     Dosage: UNK
     Route: 065
  8. HYDROXYZINE [Suspect]
     Active Substance: HYDROXYZINE HYDROCHLORIDE
     Indication: BINGE EATING
     Dosage: 25 MG
     Route: 065
  9. BACLOFEN. [Suspect]
     Active Substance: BACLOFEN
     Dosage: UNK, 180 TO 200 MG ONCE A DAY
     Route: 048
  10. ABACAVIR + LAMIVUDIN [Concomitant]
     Active Substance: ABACAVIR\LAMIVUDINE
     Indication: BINGE EATING
     Dosage: UNK
     Route: 065
  11. BISOPROLOL [Concomitant]
     Active Substance: BISOPROLOL
     Indication: BINGE EATING
     Dosage: UNK
     Route: 065
     Dates: start: 2016
  12. BACLOFEN. [Suspect]
     Active Substance: BACLOFEN
     Dosage: MIXED 10 AND 25 MG PILLS TO OBTAIN FULL DOSAGE
     Route: 065
  13. BACLOFEN. [Suspect]
     Active Substance: BACLOFEN
     Dosage: 70 MILLIGRAM, ONCE A DAY
     Route: 065
  14. HYDROXYZINE [Suspect]
     Active Substance: HYDROXYZINE HYDROCHLORIDE
     Dosage: UNK
     Route: 065
  15. BACLOFEN. [Suspect]
     Active Substance: BACLOFEN
     Dosage: 150 MILLIGRAM, ONCE A DAY, DOSAGE OF 150 MG/D AFTER MEDICAL EVALUATION
     Route: 065
  16. BACLOFEN. [Suspect]
     Active Substance: BACLOFEN
     Dosage: UNK, 120 TO 140 MG/D
     Route: 065
  17. BACLOFEN. [Suspect]
     Active Substance: BACLOFEN
     Indication: BINGE EATING
     Dosage: 60 MILLIGRAM, 5 TIMES A DAY
     Route: 048
  18. BACLOFEN. [Suspect]
     Active Substance: BACLOFEN
     Dosage: 150 MILLIGRAM, ONCE A DAY
     Route: 048
  19. TELMISARTAN. [Concomitant]
     Active Substance: TELMISARTAN
     Indication: BINGE EATING
     Dosage: UNK
     Route: 065
  20. MIANSERIN [Suspect]
     Active Substance: MIANSERIN
     Indication: BINGE EATING
     Dosage: 10 MG
     Route: 065
  21. BACLOFEN. [Suspect]
     Active Substance: BACLOFEN
     Dosage: UNK UNK, ONCE A DAY, 180 TO 200 MG/D
     Route: 065
  22. BACLOFEN. [Suspect]
     Active Substance: BACLOFEN
     Dosage: UNK, 120-140 MG ONCE A DAY
     Route: 048
  23. NEVIRAPINE. [Concomitant]
     Active Substance: NEVIRAPINE
     Indication: BINGE EATING
     Dosage: UNK
     Route: 065
  24. SPIRONOLACTONE. [Concomitant]
     Active Substance: SPIRONOLACTONE
     Indication: BINGE EATING
     Dosage: UNK
     Route: 065
  25. ASPIRIN. [Concomitant]
     Active Substance: ASPIRIN
     Indication: PRODUCT USED FOR UNKNOWN INDICATION
     Dosage: UNK
     Route: 065

REACTIONS (18)
  - Time perception altered [Recovered/Resolved]
  - Nausea [Recovered/Resolved]
  - Somnolence [Recovered/Resolved]
  - Aggression [Recovered/Resolved]
  - Delusion [Unknown]
  - Psychotic disorder [Unknown]
  - Confusional state [Recovered/Resolved]
  - Cognitive disorder [Recovered/Resolved]
  - Delusional perception [Recovered/Resolved]
  - Tachyphrenia [Recovered/Resolved]
  - Irritability [Recovered/Resolved]
  - Overdose [Unknown]
  - Drug withdrawal syndrome [Recovered/Resolved]
  - Drug level increased [Recovered/Resolved]
  - Hallucination, visual [Recovered/Resolved]
  - Psychomotor hyperactivity [Recovered/Resolved]
  - Amnesia [Recovered/Resolved]
  - Dizziness [Recovered/Resolved]
